FAERS Safety Report 6296158-2 (Version None)
Quarter: 2009Q3

REPORT INFORMATION
  Report Type: 
  Country: None (occurrence: None)
  Receive Date: 20090803
  Receipt Date: 20090803
  Transmission Date: 20100115
  Serious: No
  Sender: FDA-Public Use
  Company Number: None

PATIENT
  Age: 58 Year
  Sex: Female
  Weight: 143.7903 kg

DRUGS (3)
  1. TOPAMAX [Suspect]
     Indication: NERVE INJURY
     Dosage: 100 MG 1X IN AM PO
     Route: 048
  2. TOPAMAX [Suspect]
     Indication: PAIN
     Dosage: 100 MG 1X IN AM PO
     Route: 048
  3. TOPIRAMATE [Suspect]
     Dosage: 100 MG 1X IN AM PO
     Route: 048

REACTIONS (2)
  - DRUG EFFECT DECREASED [None]
  - PRODUCT SUBSTITUTION ISSUE [None]
